FAERS Safety Report 12120623 (Version 1)
Quarter: 2016Q1

REPORT INFORMATION
  Report Type: Spontaneous
  Country: IT (occurrence: IT)
  Receive Date: 20160226
  Receipt Date: 20160226
  Transmission Date: 20160526
  Serious: Yes (Death, Other)
  Sender: FDA-Public Use
  Company Number: IT-FRESENIUS KABI-FK201601046

PATIENT
  Age: 65 Year
  Sex: Male

DRUGS (8)
  1. BETAMETHASONE. [Concomitant]
     Active Substance: BETAMETHASONE
  2. BETAMETHASONE. [Concomitant]
     Active Substance: BETAMETHASONE
  3. TETRACYCLINE [Concomitant]
     Active Substance: TETRACYCLINE
  4. TETRACYCLINE [Concomitant]
     Active Substance: TETRACYCLINE
  5. IRINOTECAN (MANUFACTURER UNKNOWN) [Suspect]
     Active Substance: IRINOTECAN
     Indication: COLON CANCER
     Route: 065
     Dates: end: 201308
  6. CALCIUM LEVOFOLINATE [Suspect]
     Active Substance: LEVOLEUCOVORIN CALCIUM
     Indication: COLON CANCER
     Dates: end: 201308
  7. CETUXIMAB [Suspect]
     Active Substance: CETUXIMAB
     Indication: COLON CANCER
     Dates: start: 201303, end: 201308
  8. FLUOROURACIL. [Suspect]
     Active Substance: FLUOROURACIL
     Indication: COLON CANCER
     Dates: end: 201308

REACTIONS (3)
  - Erythema [Recovered/Resolved]
  - Ecthyma [Recovered/Resolved]
  - Malaise [Recovered/Resolved]
